FAERS Safety Report 5797673-8 (Version None)
Quarter: 2008Q2

REPORT INFORMATION
  Report Type: 
  Country: None (occurrence: None)
  Receive Date: 20080630
  Receipt Date: 20080624
  Transmission Date: 20081010
  Serious: Yes (Death)
  Sender: FDA-Public Use
  Company Number: 163-21880-08031598

PATIENT
  Age: 83 Year
  Sex: Male
  Weight: 61.2356 kg

DRUGS (10)
  1. REVLIMID [Suspect]
     Indication: MULTIPLE MYELOMA
     Dosage: 25 MG, ORAL
     Route: 048
     Dates: start: 20070821, end: 20071206
  2. KEFLEX [Concomitant]
  3. DECADRON [Concomitant]
  4. LASIX [Concomitant]
  5. MIRALAX [Concomitant]
  6. TOPROL-XL [Concomitant]
  7. POTASSIUM (POTASSIUM) [Concomitant]
  8. ALTACE [Concomitant]
  9. SENOKOT [Concomitant]
  10. MEGACE [Concomitant]

REACTIONS (2)
  - BLOOD IMMUNOGLOBULIN G INCREASED [None]
  - DISEASE PROGRESSION [None]
